FAERS Safety Report 7672522-1 (Version None)
Quarter: 2011Q3

REPORT INFORMATION
  Report Type: 
  Country: None (occurrence: None)
  Receive Date: 20110809
  Receipt Date: 20110805
  Transmission Date: 20111222
  Serious: Yes (Hospitalization, Other)
  Sender: FDA-Public Use
  Company Number: FR-ABBOTT-11P-056-0844183-00

PATIENT
  Sex: Female

DRUGS (19)
  1. CANDESARTAN CILEXETIL [Concomitant]
     Indication: PRODUCT USED FOR UNKNOWN INDICATION
  2. HYDROXYCHLOROQUINE [Concomitant]
     Indication: RHEUMATOID ARTHRITIS
     Dates: start: 19920101, end: 19920101
  3. FOLIC ACID [Concomitant]
     Indication: RHEUMATOID ARTHRITIS
     Dates: start: 20050401, end: 20061001
  4. TOCILIZUMAB [Concomitant]
     Indication: RHEUMATOID ARTHRITIS
     Dates: start: 20110427
  5. METHOTREXATE [Suspect]
     Indication: RHEUMATOID ARTHRITIS
     Route: 048
     Dates: start: 20050401, end: 20061001
  6. METHOTREXATE [Suspect]
     Dates: start: 20070626, end: 20110601
  7. RITUXIMAB [Suspect]
     Indication: RHEUMATOID ARTHRITIS
     Dosage: 4 COURSES
     Dates: start: 20080201
  8. RITUXIMAB [Suspect]
     Dates: start: 20090501
  9. SULFASALAZINE [Concomitant]
     Indication: RHEUMATOID ARTHRITIS
     Dates: start: 20041101, end: 20050401
  10. GOLD SALTS [Concomitant]
     Indication: RHEUMATOID ARTHRITIS
     Dates: start: 19970101, end: 20020101
  11. PREDNISONE [Concomitant]
     Indication: RHEUMATOID ARTHRITIS
     Dates: start: 19920101
  12. ETANERCEPT [Suspect]
     Indication: RHEUMATOID ARTHRITIS
     Route: 058
     Dates: start: 20070626, end: 20071201
  13. ABATACEPT [Suspect]
     Indication: RHEUMATOID ARTHRITIS
     Route: 042
     Dates: start: 20100830, end: 20110323
  14. RITUXIMAB [Suspect]
     Dates: start: 20100101
  15. OMEPRAZOLE [Concomitant]
     Indication: PRODUCT USED FOR UNKNOWN INDICATION
  16. LEFLUNOMIDE [Concomitant]
     Indication: RHEUMATOID ARTHRITIS
     Dates: start: 20070301, end: 20070601
  17. HUMIRA [Suspect]
     Indication: RHEUMATOID ARTHRITIS
     Route: 058
     Dates: start: 20071201, end: 20080401
  18. RITUXIMAB [Suspect]
     Dates: start: 20081001
  19. LEVOTHYROXINE SODIUM [Concomitant]
     Indication: PRODUCT USED FOR UNKNOWN INDICATION

REACTIONS (4)
  - FALL [None]
  - SMALL CELL LUNG CANCER STAGE UNSPECIFIED [None]
  - WRIST FRACTURE [None]
  - CHEST PAIN [None]
